FAERS Safety Report 22112033 (Version 1)
Quarter: 2023Q1

REPORT INFORMATION
  Report Type: Spontaneous
  Country: CZ (occurrence: CZ)
  Receive Date: 20230318
  Receipt Date: 20230318
  Transmission Date: 20230417
  Serious: Yes (Hospitalization, Other)
  Sender: FDA-Public Use
  Company Number: CZ-CZSUKL-23000765

PATIENT
  Age: 22 Year
  Sex: Female

DRUGS (3)
  1. SERTRALINE [Suspect]
     Active Substance: SERTRALINE HYDROCHLORIDE
     Indication: Product used for unknown indication
     Dosage: UNK (TOTAL DOSE 2500 MG)
     Route: 065
     Dates: start: 20200109, end: 20200109
  2. DIAZEPAM [Suspect]
     Active Substance: DIAZEPAM
     Indication: Product used for unknown indication
     Dosage: 10 MILLIGRAM (TOTAL DOSE 7 TABLETS)
     Route: 065
     Dates: start: 20200109
  3. ACETAMINOPHEN [Suspect]
     Active Substance: ACETAMINOPHEN
     Indication: Product used for unknown indication
     Dosage: UNK (TOTAL DOSE 5000 MG)
     Route: 065
     Dates: start: 20200109, end: 20200109

REACTIONS (2)
  - Suicide attempt [Unknown]
  - Intentional overdose [Unknown]

NARRATIVE: CASE EVENT DATE: 20200109
